FAERS Safety Report 18108666 (Version 1)
Quarter: 2020Q3

REPORT INFORMATION
  Report Type: Report from Study
  Country: None (occurrence: NL)
  Receive Date: 20200803
  Receipt Date: 20200803
  Transmission Date: 20201103
  Serious: Yes (Other)
  Sender: FDA-Public Use
  Company Number: NL-ABBVIE-20K-114-3505891-00

PATIENT
  Age: 48 Year
  Sex: Male

DRUGS (5)
  1. MADOPAR DISPERSIBLE [Concomitant]
     Indication: PARKINSON^S DISEASE
     Route: 048
  2. DUODOPA [Suspect]
     Active Substance: CARBIDOPA\LEVODOPA
  3. VITAMIN B12 [Concomitant]
     Active Substance: CYANOCOBALAMIN
     Indication: PRODUCT USED FOR UNKNOWN INDICATION
  4. APOMORFINE [Concomitant]
     Indication: PRODUCT USED FOR UNKNOWN INDICATION
  5. DUODOPA [Suspect]
     Active Substance: CARBIDOPA\LEVODOPA
     Indication: PARKINSON^S DISEASE
     Dosage: CD 2.5, ED 1.5
     Route: 050
     Dates: start: 20140604

REACTIONS (3)
  - Device dislocation [Unknown]
  - Deep brain stimulation [Unknown]
  - Dystonia [Unknown]

NARRATIVE: CASE EVENT DATE: 201909
